FAERS Safety Report 9436510 (Version 1)
Quarter: 2013Q3

REPORT INFORMATION
  Report Type: Spontaneous
  Country: US (occurrence: US)
  Receive Date: 20130802
  Receipt Date: 20130802
  Transmission Date: 20140515
  Serious: No
  Sender: FDA-Public Use
  Company Number: US-OPTIMER-20130011

PATIENT
  Age: 61 Year
  Sex: Male
  Weight: 86.17 kg

DRUGS (3)
  1. DIFICID [Suspect]
     Indication: DIARRHOEA
     Dosage: 200 MG, BID PRN
     Route: 048
     Dates: start: 20130105
  2. NORVIR [Concomitant]
     Indication: HIV INFECTION
     Dosage: UNK
     Route: 048
  3. TRICOR [Concomitant]
     Indication: BLOOD PRESSURE
     Dosage: UNK
     Route: 048

REACTIONS (3)
  - Diarrhoea [Not Recovered/Not Resolved]
  - Sedation [Recovered/Resolved]
  - Inappropriate schedule of drug administration [Unknown]
